FAERS Safety Report 17034484 (Version 2)
Quarter: 2019Q4

REPORT INFORMATION
  Report Type: Report from Study
  Country: None (occurrence: US)
  Receive Date: 20191115
  Receipt Date: 20191116
  Transmission Date: 20200122
  Serious: Yes (Death)
  Sender: FDA-Public Use
  Company Number: US-ABBVIE-19K-163-3001090-00

PATIENT
  Sex: Female

DRUGS (1)
  1. VENCLEXTA [Suspect]
     Active Substance: VENETOCLAX
     Indication: MYELOID LEUKAEMIA
     Dosage: TAKE 1 TABLET BY MOUTH DAILY ON DAYS 1 THROUGH 21 WITH 7 DAYS OFF EVERY 28 DAYS
     Route: 048

REACTIONS (2)
  - Death [Fatal]
  - Off label use [Unknown]
